FAERS Safety Report 5750744-4 (Version None)
Quarter: 2008Q2

REPORT INFORMATION
  Report Type: 
  Country: None (occurrence: None)
  Receive Date: 20080523
  Receipt Date: 20080523
  Transmission Date: 20081010
  Serious: Yes (Other)
  Sender: FDA-Public Use
  Company Number: None

PATIENT
  Sex: Male
  Weight: 88.4514 kg

DRUGS (2)
  1. NIASPAN [Suspect]
     Dosage: 500MG DAILY
  2. TRICOR [Suspect]
     Dosage: 96 MG  DAILY

REACTIONS (4)
  - FATIGUE [None]
  - FLUID RETENTION [None]
  - GASTRIC DISORDER [None]
  - MUSCLE DISORDER [None]
